FAERS Safety Report 21390555 (Version 4)
Quarter: 2022Q4

REPORT INFORMATION
  Report Type: Report from Study
  Country: US (occurrence: US)
  Receive Date: 20220929
  Receipt Date: 20221215
  Transmission Date: 20230113
  Serious: Yes (Other)
  Sender: FDA-Public Use
  Company Number: US-NOVARTISTESTPH-NVSC2022US217952

PATIENT
  Age: 27 Year
  Sex: Male

DRUGS (2)
  1. KESIMPTA [Suspect]
     Active Substance: OFATUMUMAB
     Indication: Multiple sclerosis
     Dosage: UNK
     Route: 058
     Dates: start: 20220828
  2. KESIMPTA [Suspect]
     Active Substance: OFATUMUMAB
     Dosage: UNK (YESTERDAY)
     Route: 065

REACTIONS (8)
  - Multiple sclerosis relapse [Unknown]
  - Headache [Unknown]
  - Joint swelling [Unknown]
  - Peripheral swelling [Unknown]
  - Feeling cold [Unknown]
  - Illness [Unknown]
  - Chills [Unknown]
  - Product dose omission issue [Unknown]

NARRATIVE: CASE EVENT DATE: 20220903
